FAERS Safety Report 9830101 (Version 1)
Quarter: 2014Q1

REPORT INFORMATION
  Report Type: Spontaneous
  Country: US (occurrence: US)
  Receive Date: 20140120
  Receipt Date: 20140120
  Transmission Date: 20141002
  Serious: Yes (Hospitalization)
  Sender: FDA-Public Use
  Company Number: US-BAYER-2014-009528

PATIENT
  Age: 29 Year
  Sex: Male

DRUGS (4)
  1. CIPRO [Suspect]
     Indication: DIVERTICULITIS
     Dosage: DAILY DOSE 400 MG
     Route: 042
     Dates: start: 20120427
  2. CIPRO [Suspect]
     Indication: DIVERTICULITIS
     Dosage: 500 MG, BID
     Route: 048
     Dates: start: 20120503, end: 20120513
  3. CIPROFLOXACIN [Suspect]
     Indication: DIVERTICULITIS
     Dosage: 500 MG, BID
     Route: 048
     Dates: start: 20120427, end: 20120429
  4. FLAGYL [Concomitant]
     Indication: DIVERTICULITIS

REACTIONS (14)
  - Muscular weakness [None]
  - Amnesia [None]
  - Muscle spasms [None]
  - Muscle spasms [None]
  - Pain in extremity [None]
  - Urinary tract disorder [None]
  - Dysphagia [None]
  - Nausea [None]
  - Decreased appetite [None]
  - Weight decreased [None]
  - Visual impairment [None]
  - Arthralgia [None]
  - Nervousness [None]
  - Bedridden [None]
